FAERS Safety Report 10357726 (Version 2)
Quarter: 2014Q4

REPORT INFORMATION
  Report Type: Other
  Country: IT (occurrence: IT)
  Receive Date: 20140801
  Receipt Date: 20141110
  Transmission Date: 20150528
  Serious: Yes (Other)
  Sender: FDA-Public Use
  Company Number: IT-MYLAN-2014S1017828

PATIENT

DRUGS (2)
  1. LEVOFLOXACIN. [Suspect]
     Active Substance: LEVOFLOXACIN
     Dosage: 500 MG,TOTAL
     Route: 048
     Dates: start: 20140707, end: 20140707
  2. IPERTROFAN [Concomitant]
     Indication: PROSTATITIS
     Dosage: 40 MG,UNK
     Route: 048
     Dates: start: 20140502, end: 20140707

REACTIONS (6)
  - Urticaria [Recovered/Resolved]
  - Tongue eruption [Recovered/Resolved]
  - Tachycardia [Recovered/Resolved]
  - Throat tightness [Recovered/Resolved]
  - Angioedema [Recovered/Resolved]
  - Dysphonia [Recovered/Resolved]

NARRATIVE: CASE EVENT DATE: 20140707
